FAERS Safety Report 5760328-X (Version None)
Quarter: 2008Q2

REPORT INFORMATION
  Report Type: 
  Country: None (occurrence: None)
  Receive Date: 20080602
  Receipt Date: 20080522
  Transmission Date: 20081010
  Serious: Yes (Hospitalization)
  Sender: FDA-Public Use
  Company Number: CLOF-1000178

PATIENT
  Age: 60 Year
  Sex: Female
  Weight: 87.6 kg

DRUGS (2)
  1. CLOLAR [Suspect]
     Indication: ACUTE MYELOID LEUKAEMIA
     Dosage: 30 MG/M2, QDX5, INTRAVENOUS
     Route: 042
  2. BUSULFAN (BUSULFAN) [Suspect]
     Indication: ACUTE MYELOID LEUKAEMIA
     Dosage: 3.2 MG/KG, QD,

REACTIONS (3)
  - ASCITES [None]
  - DEEP VEIN THROMBOSIS [None]
  - VENOOCCLUSIVE DISEASE [None]
